FAERS Safety Report 15933333 (Version 1)
Quarter: 2019Q1

REPORT INFORMATION
  Report Type: Spontaneous
  Country: US (occurrence: US)
  Receive Date: 20190207
  Receipt Date: 20190207
  Transmission Date: 20190417
  Serious: No
  Sender: FDA-Public Use
  Company Number: US-ABBVIE-19K-163-2611107-00

PATIENT

DRUGS (2)
  1. HARVONI [Suspect]
     Active Substance: LEDIPASVIR\SOFOSBUVIR
     Indication: PRODUCT USED FOR UNKNOWN INDICATION
     Route: 065
  2. MAVYRET [Suspect]
     Active Substance: GLECAPREVIR\PIBRENTASVIR
     Indication: HEPATITIS C
     Route: 048

REACTIONS (8)
  - Fatigue [Unknown]
  - Tinnitus [Unknown]
  - Neck pain [Not Recovered/Not Resolved]
  - Migraine [Unknown]
  - Radiculopathy [Unknown]
  - Neuralgia [Recovering/Resolving]
  - Eczema [Unknown]
  - Arthralgia [Unknown]
